FAERS Safety Report 15931674 (Version 2)
Quarter: 2019Q2

REPORT INFORMATION
  Report Type: Spontaneous
  Country: JP (occurrence: JP)
  Receive Date: 20190207
  Receipt Date: 20190410
  Transmission Date: 20190711
  Serious: Yes (Other)
  Sender: FDA-Public Use
  Company Number: JP-ROCHE-2260418

PATIENT
  Age: 81 Year
  Sex: Female
  Weight: 28 kg

DRUGS (8)
  1. DENOSINE (JAPAN) [Suspect]
     Active Substance: GANCICLOVIR
     Indication: CYTOMEGALOVIRUS ENTEROCOLITIS
     Route: 041
     Dates: start: 20190109
  2. PANTOL (JAPAN) [Concomitant]
     Route: 058
     Dates: start: 20190111
  3. PREDONINE [Concomitant]
     Active Substance: PREDNISOLONE
     Route: 065
     Dates: start: 20190109, end: 20190208
  4. CARBAZOCHROME SODIUM SULFONATE [Concomitant]
     Active Substance: CARBAZOCHROME SODIUM SULFONATE
     Route: 065
     Dates: start: 20190116, end: 20190207
  5. ALBUMINAR [Concomitant]
     Active Substance: ALBUMIN HUMAN
     Route: 065
     Dates: start: 20190124, end: 20190125
  6. OMEPRAZOLE. [Concomitant]
     Active Substance: OMEPRAZOLE
     Route: 065
     Dates: start: 20190108, end: 20190214
  7. INTRALIPOS [Concomitant]
     Active Substance: SOYBEAN OIL
     Route: 065
     Dates: start: 20190122
  8. TAZOPIPE [Concomitant]
     Active Substance: PIPERACILLIN SODIUM\TAZOBACTAM SODIUM
     Route: 065
     Dates: start: 20190108, end: 20190204

REACTIONS (2)
  - Melaena [Not Recovered/Not Resolved]
  - Platelet count decreased [Recovered/Resolved]

NARRATIVE: CASE EVENT DATE: 20190115
